FAERS Safety Report 25820976 (Version 1)
Quarter: 2025Q3

REPORT INFORMATION
  Report Type: Report from Study
  Country: CA (occurrence: CA)
  Receive Date: 20250919
  Receipt Date: 20250919
  Transmission Date: 20251021
  Serious: Yes (Other)
  Sender: CELLTRION
  Company Number: CA-CELLTRION INC.-2025CA012192

PATIENT

DRUGS (2)
  1. ADALIMUMAB-AATY [Suspect]
     Active Substance: ADALIMUMAB-AATY
     Indication: Ankylosing spondylitis
     Route: 058
     Dates: start: 202408, end: 202411
  2. ADALIMUMAB-AATY [Suspect]
     Active Substance: ADALIMUMAB-AATY

REACTIONS (2)
  - Pneumonia [Unknown]
  - Emphysema [Unknown]

NARRATIVE: CASE EVENT DATE: 20241101
